FAERS Safety Report 5327580-6 (Version None)
Quarter: 2007Q2

REPORT INFORMATION
  Report Type: 
  Country: None (occurrence: None)
  Receive Date: 20070517
  Receipt Date: 20070112
  Transmission Date: 20071010
  Serious: Yes (Hospitalization)
  Sender: FDA-Public Use
  Company Number: US-JNJFOC-20070104478

PATIENT
  Age: 17 Year
  Sex: Male

DRUGS (6)
  1. TRAMADOL HCL [Suspect]
     Indication: INTENTIONAL DRUG MISUSE
     Route: 048
  2. BENZO [Suspect]
     Indication: INTENTIONAL DRUG MISUSE
     Route: 048
  3. OTHER ANTIHISTAMINES [Suspect]
     Indication: INTENTIONAL DRUG MISUSE
     Route: 048
  4. CIMETIDINE HCL [Suspect]
     Indication: INTENTIONAL DRUG MISUSE
     Route: 048
  5. LOPERAMIDE HCL [Suspect]
     Indication: INTENTIONAL DRUG MISUSE
     Route: 048
  6. DIPHENHYDRAMINE HCL [Suspect]
     Indication: INTENTIONAL DRUG MISUSE
     Route: 048

REACTIONS (2)
  - AGITATION [None]
  - MULTIPLE DRUG OVERDOSE [None]
